FAERS Safety Report 6466672-5 (Version None)
Quarter: 2009Q4

REPORT INFORMATION
  Report Type: 
  Country: None (occurrence: None)
  Receive Date: 20091201
  Receipt Date: 20091201
  Transmission Date: 20100525
  Serious: Yes (Disabling)
  Sender: FDA-Public Use
  Company Number: None

PATIENT
  Age: 83 Year
  Sex: Female
  Weight: 45.3597 kg

DRUGS (2)
  1. DDAVP [Suspect]
     Indication: DIABETES INSIPIDUS
     Dosage: 1/2 OF 0.1 MG DAILY/AS NEEDED 1 DAILY PO
     Route: 048
  2. WARFARIN SODIUM [Suspect]
     Indication: ATRIAL FIBRILLATION
     Dosage: 1 MG 1 DAILY PO
     Route: 048

REACTIONS (4)
  - ATRIAL FIBRILLATION [None]
  - DRUG EFFECT DECREASED [None]
  - POLLAKIURIA [None]
  - THIRST [None]
